FAERS Safety Report 23953494 (Version 1)
Quarter: 2024Q2

REPORT INFORMATION
  Report Type: Spontaneous
  Country: ES (occurrence: ES)
  Receive Date: 20240608
  Receipt Date: 20240608
  Transmission Date: 20240715
  Serious: Yes (Other)
  Sender: FDA-Public Use
  Company Number: ES-NOVITIUMPHARMA-2024ESNVP00976

PATIENT
  Age: 83 Year
  Sex: Female

DRUGS (2)
  1. DAPSONE [Suspect]
     Active Substance: DAPSONE
     Indication: Erythema annulare
  2. PREDNISONE [Suspect]
     Active Substance: PREDNISONE
     Indication: Erythema annulare

REACTIONS (2)
  - Haemolytic anaemia [Recovered/Resolved]
  - Rebound effect [Unknown]
